FAERS Safety Report 9874666 (Version 2)
Quarter: 2014Q1

REPORT INFORMATION
  Report Type: Spontaneous
  Country: US (occurrence: US)
  Receive Date: 20140206
  Receipt Date: 20140210
  Transmission Date: 20141002
  Serious: Yes (Other)
  Sender: FDA-Public Use
  Company Number: CHPA2014US001995

PATIENT
  Age: 86 Year
  Sex: Female

DRUGS (5)
  1. GAS-X [Suspect]
     Indication: FLATULENCE
     Route: 048
  2. GAS-X [Suspect]
     Indication: ABDOMINAL PAIN UPPER
  3. GAS-X [Suspect]
     Indication: OFF LABEL USE
  4. ZITHROMAX [Suspect]
     Indication: VIRAL INFECTION
     Dosage: 250 MG, BID
     Route: 048
     Dates: start: 20140130, end: 20140130
  5. ZITHROMAX [Suspect]
     Dosage: 250 MG, QD
     Dates: start: 20140131

REACTIONS (4)
  - Viral infection [Unknown]
  - Gastric perforation [Not Recovered/Not Resolved]
  - Irritable bowel syndrome [Not Recovered/Not Resolved]
  - Gastrointestinal erosion [Not Recovered/Not Resolved]
